FAERS Safety Report 7583442-5 (Version None)
Quarter: 2011Q2

REPORT INFORMATION
  Report Type: 
  Country: None (occurrence: None)
  Receive Date: 20110630
  Receipt Date: 20110622
  Transmission Date: 20111010
  Serious: Yes (Death, Other)
  Sender: FDA-Public Use
  Company Number: US-MYLANLABS-2011S1013091

PATIENT
  Age: 19 Year
  Sex: Male
  Weight: 45.36 kg

DRUGS (5)
  1. DEPAKOTE [Suspect]
     Route: 048
     Dates: start: 20000101, end: 20091212
  2. CLONIDINE HYDROCHLORIDE [Suspect]
     Route: 048
     Dates: start: 20091112, end: 20091212
  3. CALCIUM CARBONATE [Suspect]
     Indication: EPILEPSY
     Route: 048
     Dates: start: 20080101, end: 20091212
  4. CLONIDINE HYDROCHLORIDE [Suspect]
     Indication: ABNORMAL BEHAVIOUR
     Route: 048
     Dates: start: 20091112, end: 20091212
  5. DEPAKOTE [Suspect]
     Indication: EPILEPSY
     Route: 048
     Dates: start: 20000101, end: 20091212

REACTIONS (6)
  - DRUG INTERACTION [None]
  - DROWNING [None]
  - ABNORMAL BEHAVIOUR [None]
  - SOMNOLENCE [None]
  - EPILEPSY [None]
  - SEDATION [None]
